FAERS Safety Report 9255818 (Version 1)
Quarter: 2013Q2

REPORT INFORMATION
  Report Type: Spontaneous
  Country: US (occurrence: US)
  Receive Date: 20130425
  Receipt Date: 20130425
  Transmission Date: 20140414
  Serious: Yes (Other)
  Sender: FDA-Public Use
  Company Number: US-BRISTOL-MYERS SQUIBB COMPANY-18823104

PATIENT
  Age: 51 Year
  Sex: Male
  Weight: 82.99 kg

DRUGS (14)
  1. ABATACEPT SUBQ INJECTION 125MG/ML [Suspect]
     Indication: RHEUMATOID ARTHRITIS
     Dosage: 150MG/ML
     Route: 058
  2. ENBREL [Suspect]
     Indication: RHEUMATOID ARTHRITIS
     Route: 058
  3. CYMBALTA [Concomitant]
  4. METHOTREXATE [Concomitant]
  5. NORVASC [Concomitant]
  6. TRAMADOL [Concomitant]
  7. METHOTREXATE [Concomitant]
  8. LISINOPRIL [Concomitant]
  9. TOPROL [Concomitant]
  10. NEXIUM [Concomitant]
  11. OXYCODONE HCL + ACETAMINOPHEN [Concomitant]
  12. VITAMIN D [Concomitant]
  13. MULTIVITAMINS [Concomitant]
  14. FOLIC ACID [Concomitant]

REACTIONS (1)
  - Gallbladder disorder [Unknown]
